FAERS Safety Report 10012178 (Version 2)
Quarter: 2014Q1

REPORT INFORMATION
  Report Type: Report from Study
  Country: JP (occurrence: JP)
  Receive Date: 20140314
  Receipt Date: 20140325
  Transmission Date: 20141002
  Serious: Yes (Life-Threatening, Hospitalization)
  Sender: FDA-Public Use
  Company Number: JP-GLAXOSMITHKLINE-B0976554A

PATIENT
  Age: 71 Year
  Sex: Male

DRUGS (2)
  1. VOTRIENT 200MG [Suspect]
     Indication: MALIGNANT FIBROUS HISTIOCYTOMA
     Dosage: 800MG PER DAY
     Route: 048
     Dates: start: 20140110, end: 20140223
  2. AMLODIPINE [Concomitant]
     Indication: HYPERTENSION
     Dosage: 10MG PER DAY
     Route: 048

REACTIONS (2)
  - Cerebellar haemorrhage [Not Recovered/Not Resolved]
  - Hypertension [Not Recovered/Not Resolved]
